FAERS Safety Report 19942267 (Version 1)
Quarter: 2021Q4

REPORT INFORMATION
  Report Type: Spontaneous
  Country: US (occurrence: US)
  Receive Date: 20211011
  Receipt Date: 20211011
  Transmission Date: 20220303
  Serious: Yes (Other)
  Sender: FDA-Public Use
  Company Number: None

PATIENT
  Age: 65 Year
  Sex: Female
  Weight: 84.4 kg

DRUGS (9)
  1. TOCILIZUMAB [Suspect]
     Active Substance: TOCILIZUMAB
     Indication: COVID-19
     Dosage: ?          OTHER FREQUENCY:ONCE;
     Route: 041
     Dates: start: 20210924, end: 20210924
  2. Dexamethasone 6mg daily [Concomitant]
     Dates: start: 20210923, end: 20210924
  3. REMDESIVIR [Concomitant]
     Active Substance: REMDESIVIR
     Dates: start: 20210923, end: 20210927
  4. Dexamethasone 20 mg daily [Concomitant]
     Dates: start: 20210924, end: 20210928
  5. PROPOFOL [Concomitant]
     Active Substance: PROPOFOL
     Dates: start: 20210924, end: 20210926
  6. NOREPINEPHRINE [Concomitant]
     Active Substance: NOREPINEPHRINE
     Dates: start: 20210924, end: 20210927
  7. Insulin drip 100 units/100 mL [Concomitant]
     Dates: start: 20210924, end: 20210926
  8. Fentanyl drip [Concomitant]
     Dates: start: 20210924
  9. AMPICILLIN SODIUM\SULBACTAM SODIUM [Concomitant]
     Active Substance: AMPICILLIN SODIUM\SULBACTAM SODIUM
     Dates: start: 20210924, end: 20210927

REACTIONS (5)
  - Aspergillus infection [None]
  - Aspergillus infection [None]
  - Candida infection [None]
  - Respiratory distress [None]
  - Chest X-ray abnormal [None]

NARRATIVE: CASE EVENT DATE: 20210930
